FAERS Safety Report 11008002 (Version 1)
Quarter: 2015Q2

REPORT INFORMATION
  Report Type: Spontaneous
  Country: US (occurrence: US)
  Receive Date: 20150410
  Receipt Date: 20150410
  Transmission Date: 20150821
  Serious: No
  Sender: FDA-Public Use
  Company Number: US-ASTRAZENECA-2015SE31921

PATIENT
  Age: 715 Month
  Sex: Female
  Weight: 94.8 kg

DRUGS (19)
  1. GLIPIZIDE ER [Concomitant]
     Active Substance: GLIPIZIDE
     Route: 048
  2. REQUIP [Concomitant]
     Active Substance: ROPINIROLE HYDROCHLORIDE
  3. CRESTOR [Suspect]
     Active Substance: ROSUVASTATIN CALCIUM
     Route: 048
  4. FOLIC ACID. [Concomitant]
     Active Substance: FOLIC ACID
  5. NEURONTIN [Concomitant]
     Active Substance: GABAPENTIN
  6. METFORMIN [Concomitant]
     Active Substance: METFORMIN HYDROCHLORIDE
     Indication: DIABETES MELLITUS
     Route: 048
  7. LISINOPRIL. [Suspect]
     Active Substance: LISINOPRIL
     Route: 048
  8. AMBIEN [Concomitant]
     Active Substance: ZOLPIDEM TARTRATE
  9. NEXIUM [Suspect]
     Active Substance: ESOMEPRAZOLE MAGNESIUM
     Route: 048
  10. HCTZ [Concomitant]
     Active Substance: HYDROCHLOROTHIAZIDE
     Route: 048
  11. METHADONE [Concomitant]
     Active Substance: METHADONE HYDROCHLORIDE
  12. BYETTA [Suspect]
     Active Substance: EXENATIDE
     Indication: TYPE 2 DIABETES MELLITUS
     Route: 058
     Dates: start: 201503
  13. REPAGLINIDE. [Concomitant]
     Active Substance: REPAGLINIDE
     Route: 048
  14. CYMBALTA [Concomitant]
     Active Substance: DULOXETINE HYDROCHLORIDE
  15. LATUDA [Concomitant]
     Active Substance: LURASIDONE HYDROCHLORIDE
  16. BABY ASPIRIN [Concomitant]
     Active Substance: ASPIRIN
  17. ATENOLOL. [Suspect]
     Active Substance: ATENOLOL
     Route: 048
  18. NORCO [Concomitant]
     Active Substance: ACETAMINOPHEN\HYDROCODONE BITARTRATE
  19. SULFASALAZINE EC [Concomitant]
     Active Substance: SULFASALAZINE

REACTIONS (6)
  - Activities of daily living impaired [Unknown]
  - Lethargy [Unknown]
  - Hyperhidrosis [Unknown]
  - Visual impairment [Unknown]
  - Intentional product misuse [Unknown]
  - Blood glucose decreased [Unknown]

NARRATIVE: CASE EVENT DATE: 201503
